FAERS Safety Report 8566233-8 (Version None)
Quarter: 2012Q3

REPORT INFORMATION
  Report Type: 
  Country: None (occurrence: None)
  Receive Date: 20120803
  Receipt Date: 20110810
  Transmission Date: 20120928
  Serious: No
  Sender: FDA-Public Use
  Company Number: US-ABBOTT-11P-163-0845347-00

PATIENT
  Sex: Female
  Weight: 61.744 kg

DRUGS (18)
  1. ASPIRIN [Concomitant]
     Indication: PRODUCT USED FOR UNKNOWN INDICATION
  2. WELLBUTRIN [Concomitant]
     Indication: DEPRESSION
  3. CLONIDINE [Concomitant]
     Indication: HYPERTENSION
  4. HYDROMORPHONE HYDROCHLORIDE [Concomitant]
     Indication: PAIN
  5. NIASPAN [Suspect]
     Dates: end: 20110703
  6. METFORMIN HYDROCHLORIDE [Concomitant]
     Indication: DIABETES MELLITUS
  7. RANEXA [Concomitant]
     Indication: HYPERTENSION
  8. ATIVAN [Concomitant]
     Indication: ANXIETY
  9. HYDROCODONE BITARTRATE [Concomitant]
     Indication: PAIN
  10. PLENDIL [Concomitant]
     Indication: HYPERTENSION
  11. FERROUS SULFATE TAB [Concomitant]
     Indication: MINERAL SUPPLEMENTATION
  12. NIASPAN [Suspect]
     Indication: BLOOD CHOLESTEROL INCREASED
     Dates: start: 20060101
  13. NIASPAN [Suspect]
  14. ASPIRIN [Concomitant]
     Indication: CARDIAC DISORDER
  15. COZAAR [Concomitant]
     Indication: HYPERTENSION
  16. CYMBALTA [Concomitant]
     Indication: PAIN
  17. PLAVIX [Concomitant]
     Indication: THROMBOSIS PROPHYLAXIS
  18. LEVOTHYROXINE SODIUM [Concomitant]
     Indication: HYPOTHYROIDISM

REACTIONS (1)
  - FLUSHING [None]
